FAERS Safety Report 23849931 (Version 1)
Quarter: 2024Q2

REPORT INFORMATION
  Report Type: Spontaneous
  Country: US (occurrence: None)
  Receive Date: 20240513
  Receipt Date: 20240513
  Transmission Date: 20240716
  Serious: Yes (Hospitalization)
  Sender: FDA-Public Use
  Company Number: None

PATIENT
  Age: 35 Year
  Sex: Female

DRUGS (4)
  1. ICATIBANT ACETATE [Suspect]
     Active Substance: ICATIBANT ACETATE
     Indication: Complement deficiency disease
     Dosage: FREQUENCY : AS NEEDED;?
     Route: 058
     Dates: start: 202404
  2. RUCONEST SDV [Concomitant]
  3. HAEGARDA [Concomitant]
     Active Substance: HUMAN C1-ESTERASE INHIBITOR
  4. TAKI-ZYRO PFS [Concomitant]

REACTIONS (4)
  - Pharyngeal swelling [None]
  - Swollen tongue [None]
  - Swelling face [None]
  - Hereditary angioedema [None]

NARRATIVE: CASE EVENT DATE: 20240508
